FAERS Safety Report 15442294 (Version 1)
Quarter: 2018Q3

REPORT INFORMATION
  Report Type: Spontaneous
  Country: US (occurrence: US)
  Receive Date: 20180928
  Receipt Date: 20180928
  Transmission Date: 20181010
  Serious: No
  Sender: FDA-Public Use
  Company Number: US-PARAPRO-2017PP000081

PATIENT

DRUGS (1)
  1. ESOMEPRAZOLE STRONTIUM. [Suspect]
     Active Substance: ESOMEPRAZOLE STRONTIUM
     Indication: PRODUCT USED FOR UNKNOWN INDICATION

REACTIONS (1)
  - Crohn^s disease [Unknown]
